FAERS Safety Report 6346293-5 (Version None)
Quarter: 2009Q3

REPORT INFORMATION
  Report Type: 
  Country: None (occurrence: None)
  Receive Date: 20090909
  Receipt Date: 20090831
  Transmission Date: 20100115
  Serious: Yes (Hospitalization)
  Sender: FDA-Public Use
  Company Number: PHHY2009NO37096

PATIENT
  Age: 80 Year
  Sex: Female

DRUGS (3)
  1. EXFORGE [Suspect]
     Dosage: 160/5 MG
     Dates: start: 20090101
  2. ARIMIDEX [Suspect]
     Indication: BREAST CANCER
     Dosage: UNK
     Route: 048
     Dates: start: 20090501, end: 20090610
  3. ALBYL-E [Concomitant]
     Dosage: 75 MG, UNK
     Route: 048

REACTIONS (5)
  - ACUTE PRERENAL FAILURE [None]
  - ASTHENIA [None]
  - DECREASED APPETITE [None]
  - NAUSEA [None]
  - NORMOCHROMIC NORMOCYTIC ANAEMIA [None]
